FAERS Safety Report 6053340-7 (Version None)
Quarter: 2009Q1

REPORT INFORMATION
  Report Type: 
  Country: None (occurrence: None)
  Receive Date: 20090127
  Receipt Date: 20090123
  Transmission Date: 20090719
  Serious: Yes (Other)
  Sender: FDA-Public Use
  Company Number: B0555663A

PATIENT

DRUGS (13)
  1. PAXIL [Suspect]
     Indication: DRUG USE FOR UNKNOWN INDICATION
     Route: 048
  2. PAXIL [Suspect]
     Route: 048
  3. PAXIL [Suspect]
     Dosage: 20MG TWICE PER DAY
     Route: 048
  4. PAXIL [Suspect]
     Dosage: 20MG THREE TIMES PER DAY
     Route: 048
  5. ANAFRANIL [Concomitant]
     Dosage: 25MG THREE TIMES PER DAY
     Route: 048
  6. ANAFRANIL [Concomitant]
     Dosage: 50MG PER DAY
     Route: 048
  7. LEXOTAN [Concomitant]
     Dosage: 5MG THREE TIMES PER DAY
     Route: 048
  8. VEGETAMIN A [Concomitant]
     Route: 048
  9. FLUNITRAZEPAM [Concomitant]
     Dosage: 4MG PER DAY
     Route: 048
  10. ASASION [Concomitant]
     Dosage: .5MG PER DAY
     Route: 048
  11. ADALAT CC [Concomitant]
     Dosage: 20MG TWICE PER DAY
     Route: 048
  12. HERBESSER [Concomitant]
     Dosage: 30MG THREE TIMES PER DAY
     Route: 048
  13. MEVAN [Concomitant]
     Indication: DRUG USE FOR UNKNOWN INDICATION
     Dosage: 5MG PER DAY
     Route: 048

REACTIONS (2)
  - DEPRESSED LEVEL OF CONSCIOUSNESS [None]
  - GASTROINTESTINAL DISORDER [None]
